FAERS Safety Report 18298392 (Version 1)
Quarter: 2020Q3

REPORT INFORMATION
  Report Type: Spontaneous
  Country: AU (occurrence: AU)
  Receive Date: 20200922
  Receipt Date: 20200922
  Transmission Date: 20201103
  Serious: Yes (Other)
  Sender: FDA-Public Use
  Company Number: AU-MYLANLABS-2020M1080279

PATIENT
  Age: 10 Year
  Sex: Female

DRUGS (2)
  1. LUVOX [Suspect]
     Active Substance: FLUVOXAMINE MALEATE
     Indication: NERVOUS SYSTEM DISORDER
  2. LUVOX [Suspect]
     Active Substance: FLUVOXAMINE MALEATE
     Indication: ANXIETY
     Dosage: 1/4 OF LUVOX 50MG THREE TIMES A DAY AND 1/2 TABLET AT NIGHT

REACTIONS (2)
  - Nightmare [Unknown]
  - Suicidal ideation [Unknown]
